FAERS Safety Report 11682496 (Version 1)
Quarter: 2015Q4

REPORT INFORMATION
  Report Type: Spontaneous
  Country: US (occurrence: None)
  Receive Date: 20151028
  Receipt Date: 20151028
  Transmission Date: 20160304
  Serious: Yes (Hospitalization, Other)
  Sender: FDA-Public Use
  Company Number: None

PATIENT
  Age: 78 Year
  Sex: Female

DRUGS (1)
  1. ADCIRCA [Suspect]
     Active Substance: TADALAFIL
     Indication: HYPERTENSIVE HEART DISEASE
     Route: 048
     Dates: start: 20150915, end: 20151026

REACTIONS (3)
  - Dyspnoea [None]
  - Bronchospasm [None]
  - Bronchial haemorrhage [None]

NARRATIVE: CASE EVENT DATE: 20151016
